FAERS Safety Report 8181774-3 (Version None)
Quarter: 2012Q1

REPORT INFORMATION
  Report Type: 
  Country: None (occurrence: None)
  Receive Date: 20120302
  Receipt Date: 20120222
  Transmission Date: 20120608
  Serious: Yes (Other)
  Sender: FDA-Public Use
  Company Number: RU-ASTRAZENECA-2012SE13124

PATIENT
  Age: 56 Year
  Sex: Male

DRUGS (4)
  1. CLOSASTENE [Concomitant]
  2. CYCLODOL [Concomitant]
  3. SEROQUEL [Suspect]
     Route: 048
  4. ZYPREXA [Concomitant]

REACTIONS (3)
  - DERMATITIS ATOPIC [None]
  - PRURITUS [None]
  - RASH PAPULAR [None]
